FAERS Safety Report 7848653-X (Version None)
Quarter: 2011Q4

REPORT INFORMATION
  Report Type: 
  Country: None (occurrence: None)
  Receive Date: 20111026
  Receipt Date: 20111019
  Transmission Date: 20120403
  Serious: Yes (Hospitalization)
  Sender: FDA-Public Use
  Company Number: US-BIOGENIDEC-2006BI010627

PATIENT
  Age: 64 Year
  Sex: Female
  Weight: 49 kg

DRUGS (4)
  1. PROVIGIL [Concomitant]
     Indication: ASTHENIA
     Route: 048
  2. AVONEX [Suspect]
     Route: 030
     Dates: start: 20080701
  3. AVONEX [Suspect]
     Indication: MULTIPLE SCLEROSIS
     Route: 030
     Dates: start: 20000324, end: 20080501
  4. DARVOCET [Concomitant]
     Indication: PAIN IN EXTREMITY
     Route: 048

REACTIONS (4)
  - ABDOMINAL PAIN UPPER [None]
  - GASTROINTESTINAL INFECTION [None]
  - LARGE INTESTINE PERFORATION [None]
  - POLYP [None]
